FAERS Safety Report 7833846-8 (Version None)
Quarter: 2011Q4

REPORT INFORMATION
  Report Type: 
  Country: None (occurrence: None)
  Receive Date: 20111024
  Receipt Date: 20111014
  Transmission Date: 20120403
  Serious: Yes (Hospitalization)
  Sender: FDA-Public Use
  Company Number: JP-GLAXOSMITHKLINE-B0752021A

PATIENT
  Sex: Female

DRUGS (11)
  1. LAMICTAL [Suspect]
     Indication: BIPOLAR I DISORDER
     Dosage: 25MG PER DAY
     Route: 048
     Dates: start: 20110812, end: 20110825
  2. LAMICTAL [Suspect]
     Dosage: 25MG PER DAY
     Route: 048
     Dates: start: 20110909
  3. CLONAZEPAM [Concomitant]
     Route: 048
  4. MAGMITT [Concomitant]
     Route: 048
  5. LUDIOMIL [Concomitant]
     Route: 048
  6. LITHIUM CARBONATE [Concomitant]
     Indication: BIPOLAR DISORDER
     Dosage: 400MG PER DAY
     Route: 048
  7. NEO-MERCAZOLE TAB [Concomitant]
  8. LEVOTOMIN [Concomitant]
  9. ANAFRANIL [Concomitant]
  10. CYMBALTA [Concomitant]
     Route: 048
  11. DEPAKENE [Concomitant]
     Route: 048

REACTIONS (11)
  - PHARYNGITIS [None]
  - NAUSEA [None]
  - BLOOD PRESSURE DECREASED [None]
  - DIARRHOEA [None]
  - ANAPHYLACTIC SHOCK [None]
  - VOMITING [None]
  - PYREXIA [None]
  - CONJUNCTIVAL HYPERAEMIA [None]
  - C-REACTIVE PROTEIN INCREASED [None]
  - DERMATITIS EXFOLIATIVE [None]
  - WHITE BLOOD CELL COUNT INCREASED [None]
